FAERS Safety Report 6080938-2 (Version None)
Quarter: 2009Q1

REPORT INFORMATION
  Report Type: 
  Country: None (occurrence: None)
  Receive Date: 20090217
  Receipt Date: 20090213
  Transmission Date: 20090719
  Serious: Yes (Life-Threatening, Hospitalization)
  Sender: FDA-Public Use
  Company Number: GB-B.I. PHARMACEUTICALS,INC./RIDGEFIELD-2009-UK-00111UK

PATIENT
  Sex: Female

DRUGS (1)
  1. TIOTROPIUM (00015/0190/A) [Suspect]
     Dates: start: 20070601

REACTIONS (2)
  - FLUID RETENTION [None]
  - RESPIRATORY FAILURE [None]
